FAERS Safety Report 19088730 (Version 1)
Quarter: 2021Q2

REPORT INFORMATION
  Report Type: Spontaneous
  Country: JP (occurrence: JP)
  Receive Date: 20210403
  Receipt Date: 20210403
  Transmission Date: 20210717
  Serious: Yes (Hospitalization, Other)
  Sender: FDA-Public Use
  Company Number: JP-SUN PHARMACEUTICAL INDUSTRIES LTD-2021RR-288685

PATIENT
  Age: 43 Year
  Sex: Female
  Weight: 83.6 kg

DRUGS (3)
  1. EPOPROSTENOL. [Suspect]
     Active Substance: EPOPROSTENOL
     Dosage: 7.128 NG/KG/MIN
     Route: 065
  2. EPOPROSTENOL. [Suspect]
     Active Substance: EPOPROSTENOL
     Indication: PULMONARY HYPERTENSION
     Dosage: 0.199 NG/KG/MIN
     Route: 065
  3. EPOPROSTENOL. [Suspect]
     Active Substance: EPOPROSTENOL
     Dosage: 0.15 TO 0.5 NG/KG/MIN EVERY 5 TO 10 H
     Route: 065

REACTIONS (4)
  - Therapeutic product effect incomplete [Unknown]
  - Headache [Unknown]
  - Diarrhoea [Unknown]
  - Hepatic encephalopathy [Unknown]
